FAERS Safety Report 10134974 (Version 1)
Quarter: 2014Q2

REPORT INFORMATION
  Report Type: Spontaneous
  Country: US (occurrence: US)
  Receive Date: 20140428
  Receipt Date: 20140428
  Transmission Date: 20141212
  Serious: Yes (Other)
  Sender: FDA-Public Use
  Company Number: US-GILEAD-2014-0100964

PATIENT
  Age: 71 Year
  Sex: Male

DRUGS (12)
  1. LETAIRIS [Suspect]
     Indication: PULMONARY HYPERTENSION
     Dosage: 10 MG, QD
     Route: 065
     Dates: start: 20140220
  2. LANTUS [Concomitant]
  3. CARVEDILOL [Concomitant]
  4. NOVOLOG [Concomitant]
  5. SPIRONOLACTONE [Concomitant]
  6. LORAZEPAM [Concomitant]
  7. FINASTERIDE [Concomitant]
  8. PRILOSEC                           /00661203/ [Concomitant]
  9. FUROSEMIDE [Concomitant]
  10. SIMVASTATIN [Concomitant]
  11. WELLBUTRIN [Concomitant]
  12. BABY ASPIRIN [Concomitant]

REACTIONS (3)
  - Pneumonia [Unknown]
  - Chest discomfort [None]
  - Dyspnoea [Unknown]
